FAERS Safety Report 17181861 (Version 1)
Quarter: 2019Q4

REPORT INFORMATION
  Report Type: Report from Study
  Country: IT (occurrence: IT)
  Receive Date: 20191220
  Receipt Date: 20191220
  Transmission Date: 20200122
  Serious: Yes (Other)
  Sender: FDA-Public Use
  Company Number: IT-TEVA-2019-IT-1153988

PATIENT
  Age: 19 Year
  Sex: Female

DRUGS (2)
  1. ARIPIPRAZOLE. [Suspect]
     Active Substance: ARIPIPRAZOLE
     Indication: PERSONALITY DISORDER
     Dosage: 15 MG
     Route: 048
     Dates: start: 20190201, end: 20191113
  2. CEFIXIME. [Concomitant]
     Active Substance: CEFIXIME
     Indication: OROPHARYNGEAL PAIN
     Route: 048

REACTIONS (2)
  - Hepatic necrosis [Recovering/Resolving]
  - Hypertransaminasaemia [Recovering/Resolving]

NARRATIVE: CASE EVENT DATE: 20191112
